FAERS Safety Report 15904587 (Version 1)
Quarter: 2019Q1

REPORT INFORMATION
  Report Type: Spontaneous
  Country: US (occurrence: US)
  Receive Date: 20190204
  Receipt Date: 20190204
  Transmission Date: 20190417
  Serious: No
  Sender: FDA-Public Use
  Company Number: US-ELI_LILLY_AND_COMPANY-US201901011611

PATIENT
  Sex: Female

DRUGS (1)
  1. TALTZ [Suspect]
     Active Substance: IXEKIZUMAB
     Indication: PSORIASIS
     Dosage: UNK UNK, UNKNOWN
     Route: 065

REACTIONS (5)
  - Underdose [Not Recovered/Not Resolved]
  - Psoriasis [Recovering/Resolving]
  - Injection site haemorrhage [Recovered/Resolved]
  - Pruritus [Recovering/Resolving]
  - Injection site pain [Unknown]
